FAERS Safety Report 15575995 (Version 2)
Quarter: 2018Q4

REPORT INFORMATION
  Report Type: Report from Study
  Country: IT (occurrence: IT)
  Receive Date: 20181101
  Receipt Date: 20181101
  Transmission Date: 20190205
  Serious: Yes (Hospitalization)
  Sender: FDA-Public Use
  Company Number: IT-TEVA-2018-IT-971584

PATIENT
  Age: 64 Year
  Sex: Female

DRUGS (7)
  1. LANSOPRAZOLE. [Concomitant]
     Active Substance: LANSOPRAZOLE
     Route: 065
  2. EUTIROX 125 MICROGRAMMI COMPRESSE [Concomitant]
  3. MEDROL 4 MG COMPRESSE [Concomitant]
  4. CIQORIN 100 MG CAPSULE MOLLI [Suspect]
     Active Substance: CYCLOSPORINE
     Indication: RHEUMATOID ARTHRITIS
     Dosage: 100 MILLIGRAM DAILY;
     Route: 048
     Dates: start: 20180101, end: 20181010
  5. IGROSELES 50 MG + 12,5 MG COMPRESSE [Concomitant]
  6. TOTALIP 20 MG COMPRESSE RIVESTITE CON FILM [Concomitant]
  7. TRIPLIAM 5 MG/1,25 MG/5 MG COMPRESSE RIVESTITE CON FILM [Concomitant]

REACTIONS (3)
  - Cough [Unknown]
  - Anuria [Unknown]
  - Acute kidney injury [Unknown]

NARRATIVE: CASE EVENT DATE: 20181010
